FAERS Safety Report 8267053-4 (Version None)
Quarter: 2012Q2

REPORT INFORMATION
  Report Type: 
  Country: None (occurrence: None)
  Receive Date: 20120409
  Receipt Date: 20120403
  Transmission Date: 20120825
  Serious: No
  Sender: FDA-Public Use
  Company Number: US-PFIZER INC-2012083996

PATIENT
  Sex: Male

DRUGS (1)
  1. ADVIL COLD AND SINUS [Suspect]
     Dosage: UNK

REACTIONS (4)
  - FEELING JITTERY [None]
  - ABDOMINAL PAIN UPPER [None]
  - PANIC ATTACK [None]
  - CHEST DISCOMFORT [None]
